FAERS Safety Report 7200139-1 (Version None)
Quarter: 2010Q4

REPORT INFORMATION
  Report Type: 
  Country: None (occurrence: None)
  Receive Date: 20101228
  Receipt Date: 20101221
  Transmission Date: 20110411
  Serious: Yes (Hospitalization)
  Sender: FDA-Public Use
  Company Number: FR-JNJFOC-20100600043

PATIENT
  Sex: Male

DRUGS (10)
  1. RISPERDAL [Suspect]
     Indication: ANXIETY
     Route: 048
  2. RISPERDAL [Suspect]
     Route: 048
  3. SERESTA [Suspect]
     Indication: ANXIETY
     Route: 048
  4. SERESTA [Suspect]
     Route: 048
  5. MEMANTINE HCL [Suspect]
     Indication: DEMENTIA ALZHEIMER'S TYPE
     Route: 048
  6. MEMANTINE HCL [Suspect]
     Route: 048
  7. IMOVANE [Suspect]
     Indication: INSOMNIA
     Route: 048
  8. OMEXEL [Concomitant]
     Indication: BENIGN PROSTATIC HYPERPLASIA
     Route: 048
  9. DAFALGAN [Concomitant]
     Indication: PAIN
     Dosage: UNTIL TO 6 PER DAY
     Route: 048
  10. TANAKAN [Concomitant]
     Indication: DEMENTIA ALZHEIMER'S TYPE
     Route: 048

REACTIONS (7)
  - ABNORMAL BEHAVIOUR [None]
  - ALTERED STATE OF CONSCIOUSNESS [None]
  - ASTHENIA [None]
  - DERMABRASION [None]
  - ECCHYMOSIS [None]
  - FALL [None]
  - OFF LABEL USE [None]
